FAERS Safety Report 21548891 (Version 1)
Quarter: 2022Q4

REPORT INFORMATION
  Report Type: Report from Study
  Country: IE (occurrence: IE)
  Receive Date: 20221103
  Receipt Date: 20221103
  Transmission Date: 20230113
  Serious: Yes (Other)
  Sender: FDA-Public Use
  Company Number: IE-JNJFOC-20221058850

PATIENT
  Age: 44 Year
  Sex: Female

DRUGS (16)
  1. TREMFYA [Suspect]
     Active Substance: GUSELKUMAB
     Indication: Psoriasis
     Route: 058
     Dates: start: 20221025
  2. ARAVA [Concomitant]
     Active Substance: LEFLUNOMIDE
     Dosage: 10 MG , ONCE DAILY
  3. VENLAFAXINE HYDROCHLORIDE [Concomitant]
     Active Substance: VENLAFAXINE HYDROCHLORIDE
     Dosage: 375 MG ,ONCE DAILY
  4. DOXYCYCLINE [Concomitant]
     Active Substance: DOXYCYCLINE
     Dosage: 100 MG, ONCE DAILY
  5. ROSUVASTATIN CALCIUM [Concomitant]
     Active Substance: ROSUVASTATIN CALCIUM
     Dosage: 10 MG,PRN (AS REQUIRED)
  6. ARCOXIA [Concomitant]
     Active Substance: ETORICOXIB
     Dosage: 120 MG, PRN (AS REQUIRED)
  7. DAPAGLIFLOZIN PROPANEDIOL\METFORMIN HYDROCHLORIDE [Concomitant]
     Active Substance: DAPAGLIFLOZIN PROPANEDIOL\METFORMIN HYDROCHLORIDE
     Dosage: 5MG/1.000 ,5 MG, TWICE WEEKLY
  8. LYRICA [Concomitant]
     Active Substance: PREGABALIN
     Dosage: 300 MG, NIGHT
  9. ALLEGRA-D [FEXOFENADINE HYDROCHLORIDE;PSEUDOEPHEDRINE HYDROCHLORIDE] [Concomitant]
  10. OLMESARTAN [Concomitant]
     Active Substance: OLMESARTAN
     Dosage: 20 MG, ONCE DAILY
  11. PROTIUM [PANTOPRAZOLE SODIUM SESQUIHYDRATE] [Concomitant]
     Dosage: 40 MG, B.D
  12. OZEMPIC [Concomitant]
     Active Substance: SEMAGLUTIDE
     Dosage: 0.5 MG, ONCE WEEKLY
  13. PREGABALIN [Concomitant]
     Active Substance: PREGABALIN
     Dosage: 200 MG, ONCE DAILY
  14. CELEBREX [Concomitant]
     Active Substance: CELECOXIB
  15. DIFIN [Concomitant]
  16. FEXOFENADINE [Concomitant]
     Active Substance: FEXOFENADINE HYDROCHLORIDE
     Dosage: 180 MG , B.D

REACTIONS (1)
  - Psoriatic arthropathy [Unknown]
